FAERS Safety Report 10174423 (Version 1)
Quarter: 2014Q2

REPORT INFORMATION
  Report Type: Spontaneous
  Country: US (occurrence: US)
  Receive Date: 20140515
  Receipt Date: 20140515
  Transmission Date: 20141212
  Serious: Yes (Hospitalization)
  Sender: FDA-Public Use
  Company Number: US-GLAXOSMITHKLINE-A1072953A

PATIENT
  Age: 70 Year
  Sex: Male

DRUGS (2)
  1. NICODERM CQ CLEAR 21MG [Suspect]
     Indication: SMOKING CESSATION THERAPY
     Route: 062
     Dates: start: 201402, end: 20140510
  2. NICODERM CQ 14MG [Suspect]
     Indication: TREMOR
     Dosage: 14MG SINGLE DOSE
     Route: 062

REACTIONS (8)
  - Gastric disorder [Not Recovered/Not Resolved]
  - Abdominal pain upper [Not Recovered/Not Resolved]
  - Gallbladder disorder [Not Recovered/Not Resolved]
  - Tremor [Recovered/Resolved]
  - Pain [Not Recovered/Not Resolved]
  - Hunger [Not Recovered/Not Resolved]
  - Cardiac disorder [Unknown]
  - Drug administration error [Recovered/Resolved]
